FAERS Safety Report 20744284 (Version 1)
Quarter: 2022Q2

REPORT INFORMATION
  Report Type: Spontaneous
  Country: US (occurrence: US)
  Receive Date: 20220425
  Receipt Date: 20220425
  Transmission Date: 20220721
  Serious: No
  Sender: FDA-Public Use
  Company Number: US-GALDERMA-US2022004393

PATIENT

DRUGS (10)
  1. PROACTIV MD ADAPALENE ACNE TREATMENT [Suspect]
     Active Substance: ADAPALENE
     Indication: Product used for unknown indication
     Dosage: 1 DOSAGE FORM, QD, DAILY
     Route: 061
     Dates: start: 202201, end: 202201
  2. PROACTIV MD ADAPALENE ACNE TREATMENT [Suspect]
     Active Substance: ADAPALENE
     Dosage: 1 DOSAGE FORM, QWK, ONCE A WEEK
     Route: 061
     Dates: start: 202201, end: 202201
  3. Proactiv MD Ultra Gentle Cleanser [Concomitant]
     Indication: Product used for unknown indication
     Dosage: 1 DOSAGE FORM, QD, DAILY
     Route: 061
     Dates: start: 202201, end: 202201
  4. Proactiv MD Ultra Gentle Cleanser [Concomitant]
     Dosage: 1 DOSAGE FORM, QWK, ONCE A WEEK
     Route: 061
     Dates: start: 202201, end: 202201
  5. Proactiv MD Ultra Hydrating Moisturizer [Concomitant]
     Indication: Product used for unknown indication
     Dosage: 1 DOSAGE FORM, QD, DAILY
     Route: 061
     Dates: start: 202201, end: 202201
  6. Proactiv MD Ultra Hydrating Moisturizer [Concomitant]
     Dosage: 1 DOSAGE FORM, QWK, ONCE A WEEK
     Route: 061
     Dates: start: 202201, end: 202201
  7. PROACTIV ACNE BODY WASH [Concomitant]
     Active Substance: SALICYLIC ACID
     Indication: Product used for unknown indication
     Dosage: 1 DOSAGE FORM, QD, DAILY
     Route: 061
     Dates: start: 202201, end: 202201
  8. PROACTIV ACNE BODY WASH [Concomitant]
     Active Substance: SALICYLIC ACID
     Dosage: 1 DOSAGE FORM, QWK, ONCE A WEEK
     Route: 061
     Dates: start: 202201, end: 202201
  9. Proactiv Amazonian Clay Mask [Concomitant]
     Indication: Product used for unknown indication
     Dosage: 1 DOSAGE FORM, QD, DAILY
     Route: 061
     Dates: start: 202201, end: 202201
  10. Proactiv Amazonian Clay Mask [Concomitant]
     Dosage: 1 DOSAGE FORM, QWK, ONCE A WEEK
     Route: 061
     Dates: start: 202201, end: 202201

REACTIONS (3)
  - Skin burning sensation [Not Recovered/Not Resolved]
  - Inappropriate schedule of product administration [Recovered/Resolved]
  - Underdose [Recovered/Resolved]

NARRATIVE: CASE EVENT DATE: 20220101
